FAERS Safety Report 8621354-6 (Version None)
Quarter: 2012Q3

REPORT INFORMATION
  Report Type: 
  Country: None (occurrence: None)
  Receive Date: 20120824
  Receipt Date: 20120822
  Transmission Date: 20120928
  Serious: Yes (Hospitalization)
  Sender: FDA-Public Use
  Company Number: CH-ROCHE-1087859

PATIENT
  Age: 65 Year
  Sex: Female
  Weight: 55.3 kg

DRUGS (12)
  1. PANTOPRAZOLE [Suspect]
     Indication: PRODUCT USED FOR UNKNOWN INDICATION
     Route: 048
     Dates: start: 20120401, end: 20120525
  2. ROCEPHIN [Suspect]
     Indication: PRODUCT USED FOR UNKNOWN INDICATION
     Route: 042
     Dates: start: 20120426, end: 20120521
  3. METRONIDAZOLE [Suspect]
     Indication: PRODUCT USED FOR UNKNOWN INDICATION
     Route: 048
     Dates: start: 20120426, end: 20120525
  4. ACETAMINOPHEN [Suspect]
     Indication: PRODUCT USED FOR UNKNOWN INDICATION
     Route: 042
     Dates: start: 20120101, end: 20120525
  5. CALCIUM CARBONATE [Concomitant]
     Indication: OSTEOPOROSIS
     Route: 065
  6. CLINDAMYCIN HCL [Concomitant]
     Dates: end: 20120525
  7. AMOXICILLIN [Concomitant]
     Route: 042
  8. KONAKION [Concomitant]
  9. KEPPRA [Suspect]
     Indication: PRODUCT USED FOR UNKNOWN INDICATION
     Route: 048
  10. MEROPENEM [Concomitant]
     Dates: start: 20120527
  11. PREDNISONE TAB [Concomitant]
     Dates: end: 20120609
  12. CLEMASTINE FUMARATE [Concomitant]
     Route: 042

REACTIONS (11)
  - HEPATIC ENZYME INCREASED [None]
  - DRUG RASH WITH EOSINOPHILIA AND SYSTEMIC SYMPTOMS [None]
  - RASH ERYTHEMATOUS [None]
  - PRURITUS [None]
  - VOMITING [None]
  - LYMPHOCYTE MORPHOLOGY ABNORMAL [None]
  - C-REACTIVE PROTEIN INCREASED [None]
  - PYREXIA [None]
  - EOSINOPHILIA [None]
  - CHILLS [None]
  - OEDEMA PERIPHERAL [None]
